FAERS Safety Report 6509856-X (Version None)
Quarter: 2009Q4

REPORT INFORMATION
  Report Type: 
  Country: None (occurrence: None)
  Receive Date: 20091222
  Receipt Date: 20091210
  Transmission Date: 20100525
  Serious: Yes (Other)
  Sender: FDA-Public Use
  Company Number: GB-ASTRAZENECA-2009SE19241

PATIENT
  Age: 42 Year
  Sex: Male
  Weight: 123 kg

DRUGS (9)
  1. QUETIAPINE FUMARATE [Suspect]
     Indication: BIPOLAR DISORDER
     Route: 048
     Dates: start: 20081216
  2. QUETIAPINE FUMARATE [Suspect]
     Route: 048
     Dates: start: 20090916
  3. CHAMPIX [Suspect]
     Indication: SMOKING CESSATION THERAPY
     Route: 048
     Dates: start: 20080516
  4. CHAMPIX [Suspect]
     Route: 048
     Dates: start: 20090512, end: 20090819
  5. LITHIUM CARBONATE [Suspect]
     Indication: BIPOLAR DISORDER
     Route: 048
     Dates: start: 20081107
  6. LITHIUM CARBONATE [Suspect]
     Route: 048
     Dates: start: 20081208
  7. LITHIUM CARBONATE [Suspect]
     Route: 048
     Dates: start: 20090916
  8. VENLAFAXINE [Suspect]
     Indication: BIPOLAR DISORDER
     Route: 048
     Dates: start: 20080530
  9. VENLAFAXINE [Suspect]
     Route: 048
     Dates: start: 20090218, end: 20091021

REACTIONS (4)
  - ANXIETY [None]
  - BIPOLAR DISORDER [None]
  - DEPRESSION [None]
  - DRUG INEFFECTIVE [None]
